FAERS Safety Report 5216362-1 (Version None)
Quarter: 2007Q1

REPORT INFORMATION
  Report Type: 
  Country: None (occurrence: None)
  Receive Date: 20061124
  Receipt Date: 20060803
  Transmission Date: 20070707
  Serious: Yes (Hospitalization, Other)
  Sender: FDA-Public Use
  Company Number: WAES 0608USA01059

PATIENT
  Age: 75 Year
  Sex: Male

DRUGS (10)
  1. VYTORIN [Suspect]
     Indication: HYPERLIPIDAEMIA
     Dosage: 10-20 MG/DAILY/PO
     Route: 048
     Dates: start: 20050701, end: 20060801
  2. CAPOTEN [Concomitant]
  3. COREG [Concomitant]
  4. FLOMAX [Concomitant]
  5. IMDUR [Concomitant]
  6. PROSCAR [Concomitant]
  7. SPIRIVA [Concomitant]
  8. AMIODARONE HCL [Concomitant]
  9. DIGOXIN [Concomitant]
  10. FUROSEMIDE [Concomitant]

REACTIONS (1)
  - RHABDOMYOLYSIS [None]
